FAERS Safety Report 9628570 (Version 3)
Quarter: 2013Q4

REPORT INFORMATION
  Report Type: Report from Study
  Country: BR (occurrence: BR)
  Receive Date: 20131017
  Receipt Date: 20131221
  Transmission Date: 20140711
  Serious: Yes (Hospitalization, Other)
  Sender: FDA-Public Use
  Company Number: BR-ROCHE-716447

PATIENT
  Age: 53 Year
  Sex: Female
  Weight: 85 kg

DRUGS (25)
  1. MABTHERA [Suspect]
     Indication: RHEUMATOID ARTHRITIS
     Dosage: MOST RECENT DOSE ON 15 MAR 2013, 11/DEC/2013.
     Route: 042
     Dates: start: 20100601, end: 20110718
  2. CYCLOPHOSPHAMIDE [Suspect]
     Indication: PROTEINURIA
     Dosage: DRUG NAME REPORTED AS GENUXAL
     Route: 065
  3. CAPTOPRIL [Concomitant]
     Indication: HYPERTENSION
     Route: 065
  4. ATENSINA [Concomitant]
     Indication: HYPERTENSION
     Route: 065
  5. DEPAKENE [Concomitant]
     Indication: DEPRESSION
     Route: 065
  6. EXODUS [Concomitant]
     Indication: DEPRESSION
     Route: 065
  7. ATENOLOL [Concomitant]
     Route: 065
  8. CICLOSPORIN [Concomitant]
     Route: 065
  9. SIMVASTATIN [Concomitant]
     Route: 065
  10. PREDNISONE [Concomitant]
     Route: 065
  11. LOSARTAN [Concomitant]
     Dosage: DRUG NAME: POTASSIC LOSARTAN
     Route: 065
  12. FUROSEMIDE [Concomitant]
     Indication: POLYURIA
     Route: 065
  13. ZYLORIC [Concomitant]
     Route: 065
  14. CYCLOPHOSPHAMIDE [Concomitant]
     Route: 065
  15. PLASIL [Concomitant]
     Route: 065
     Dates: start: 2010, end: 2010
  16. ROQUINOL [Concomitant]
     Indication: BONE DISORDER
     Dosage: REPORTED AS REUQUINOL
     Route: 065
  17. CARVEDILOL [Concomitant]
  18. DIGOXIN [Concomitant]
  19. METICORTEN [Concomitant]
  20. REUQUINOL [Concomitant]
  21. OMEPRAZOLE [Concomitant]
  22. SPIRONOLACTONE [Concomitant]
  23. PRISTIQ [Concomitant]
  24. LORAX [Concomitant]
  25. LYRICA [Concomitant]

REACTIONS (13)
  - Arthralgia [Recovered/Resolved]
  - Oedema [Recovering/Resolving]
  - Proteinuria [Recovering/Resolving]
  - Wound infection pseudomonas [Recovered/Resolved]
  - White blood cell count decreased [Recovered/Resolved]
  - Osteoarthritis [Recovered/Resolved]
  - Joint effusion [Recovered/Resolved]
  - Swelling face [Recovering/Resolving]
  - Glomerulonephritis [Not Recovered/Not Resolved]
  - Influenza [Unknown]
  - Fall [Recovered/Resolved]
  - Gait disturbance [Recovered/Resolved]
  - Haematoma [Recovering/Resolving]
